FAERS Safety Report 26178756 (Version 1)
Quarter: 2025Q4

REPORT INFORMATION
  Report Type: Spontaneous
  Country: GB (occurrence: GB)
  Receive Date: 20251219
  Receipt Date: 20251219
  Transmission Date: 20260117
  Serious: Yes (Other)
  Sender: DR REDDYS
  Company Number: None

PATIENT
  Age: 84 Year
  Sex: Male
  Weight: 58 kg

DRUGS (20)
  1. MEMANTINE [Suspect]
     Active Substance: MEMANTINE
     Indication: Product used for unknown indication
     Dates: start: 20251204
  2. NITROFURANTOIN [Concomitant]
     Active Substance: NITROFURANTOIN
     Indication: Ill-defined disorder
     Dosage: TAKE ONE CAPSULE TWICE DAILY FOR 7 DAYS, TO TRE...
     Dates: start: 20251120, end: 20251127
  3. CETRABEN [Concomitant]
     Indication: Ill-defined disorder
     Dosage: USE AS DIRECTED
     Dates: start: 20251121
  4. MACROGOL COMPOUND [Concomitant]
     Indication: Ill-defined disorder
     Dosage: USE 1 SACHET 2-3 TIMES  A DAY MIXED IN A GLASS ...
     Dates: start: 20251121
  5. CEPHALEXIN [Concomitant]
     Active Substance: CEPHALEXIN
     Indication: Ill-defined disorder
     Dosage: TAKE ONE 3 TIMES/DAY
     Dates: start: 20251126, end: 20251203
  6. ALOGLIPTIN [Concomitant]
     Active Substance: ALOGLIPTIN
     Indication: Ill-defined disorder
     Dosage: ONE TO BE TAKEN DAILY
     Dates: start: 20250619
  7. ASPIRIN [Concomitant]
     Active Substance: ASPIRIN
     Indication: Ill-defined disorder
     Dosage: TAKE ONE DAILY
     Dates: start: 20250619
  8. ATENOLOL [Concomitant]
     Active Substance: ATENOLOL
     Indication: Ill-defined disorder
     Dosage: TAKE ONE EACH MORNING
     Dates: start: 20250619
  9. CHOLECALCIFEROL [Concomitant]
     Active Substance: CHOLECALCIFEROL
     Indication: Ill-defined disorder
     Dosage: ONE DAILY
     Dates: start: 20250619
  10. FELODIPINE [Concomitant]
     Active Substance: FELODIPINE
     Indication: Ill-defined disorder
     Dosage: TAKE ONE DAILY
     Dates: start: 20250619
  11. FERROUS SULFATE [Concomitant]
     Active Substance: FERROUS SULFATE
     Indication: Ill-defined disorder
     Dosage: TAKE ONE TABLET  A DAY
     Dates: start: 20250619
  12. FINASTERIDE [Concomitant]
     Active Substance: FINASTERIDE
     Indication: Ill-defined disorder
     Dosage: TAKE ONE DAILY
     Dates: start: 20250619
  13. NITROGLYCERIN [Concomitant]
     Active Substance: NITROGLYCERIN
     Indication: Ill-defined disorder
     Dosage: ONE PUFF AS NEEDED
     Dates: start: 20250619
  14. HYALURONATE SODIUM [Concomitant]
     Active Substance: HYALURONATE SODIUM
     Indication: Ill-defined disorder
     Dosage: USE AS DIRECTED
     Dates: start: 20250619
  15. LANSOPRAZOLE [Concomitant]
     Active Substance: LANSOPRAZOLE
     Indication: Ill-defined disorder
     Dosage: TAKE ONE ONCE DAILY
     Dates: start: 20250619
  16. METFORMIN [Concomitant]
     Active Substance: METFORMIN HYDROCHLORIDE
     Indication: Ill-defined disorder
     Dosage: TAKE TWO DAILY
     Dates: start: 20250619
  17. RAMIPRIL [Concomitant]
     Active Substance: RAMIPRIL
     Indication: Ill-defined disorder
     Dosage: ONE TO BE TAKEN EACH DAY
     Dates: start: 20250619
  18. ROSUVASTATIN [Concomitant]
     Active Substance: ROSUVASTATIN
     Indication: Ill-defined disorder
     Dosage: TAKE ONE DAILY
     Dates: start: 20250619
  19. SOLIFENACIN [Concomitant]
     Active Substance: SOLIFENACIN
     Indication: Ill-defined disorder
     Dosage: TAKE ONE DAILY
     Dates: start: 20250619
  20. TAMSULOSIN HYDROCHLORIDE [Concomitant]
     Active Substance: TAMSULOSIN HYDROCHLORIDE
     Indication: Ill-defined disorder
     Dosage: TAKE ONE DAILY
     Dates: start: 20250619

REACTIONS (3)
  - Rash erythematous [Recovering/Resolving]
  - Rash papular [Unknown]
  - Rash pruritic [Unknown]
